FAERS Safety Report 12169656 (Version 5)
Quarter: 2016Q2

REPORT INFORMATION
  Report Type: Spontaneous
  Country: CA (occurrence: CA)
  Receive Date: 20160310
  Receipt Date: 20160630
  Transmission Date: 20160815
  Serious: Yes (Hospitalization, Other)
  Sender: FDA-Public Use
  Company Number: CA-PFIZER INC-2016143358

PATIENT
  Age: 2 Year
  Sex: Male
  Weight: 13.7 kg

DRUGS (3)
  1. ADVIL PEDIATRIC DROPS [Suspect]
     Active Substance: IBUPROFEN
     Indication: PYREXIA
     Dosage: UNK, UNK, AS NEEDED, AS DIRECTED
     Dates: start: 2015
  2. CHILDRENS ADVIL [Suspect]
     Active Substance: IBUPROFEN
     Indication: PYREXIA
     Dosage: UNK, UNK, AS NEEDED, AS DIRECTED
     Dates: start: 2015
  3. ADVIL PEDIATRIC DROPS [Suspect]
     Active Substance: IBUPROFEN
     Dosage: UNK

REACTIONS (11)
  - Poor quality drug administered [Unknown]
  - Drug administration error [Unknown]
  - Febrile convulsion [Recovered/Resolved]
  - Wheezing [Unknown]
  - Pyrexia [Recovered/Resolved]
  - Hypoventilation [Recovered/Resolved]
  - Somnolence [Recovered/Resolved]
  - Breath sounds abnormal [Unknown]
  - Product quality issue [Unknown]
  - Respiratory tract congestion [Recovered/Resolved]
  - Pneumonia [Unknown]

NARRATIVE: CASE EVENT DATE: 20151231
